FAERS Safety Report 22092416 (Version 2)
Quarter: 2023Q1

REPORT INFORMATION
  Report Type: Spontaneous
  Country: FR (occurrence: FR)
  Receive Date: 20230314
  Receipt Date: 20230327
  Transmission Date: 20230418
  Serious: Yes (Hospitalization, Other)
  Sender: FDA-Public Use
  Company Number: FR-GLAXOSMITHKLINE-FR2017GSK106602

PATIENT
  Age: 43 Year
  Sex: Male

DRUGS (45)
  1. ACETAMINOPHEN [Suspect]
     Active Substance: ACETAMINOPHEN
     Indication: Pyrexia
     Dosage: 1 GRAM 1 G, Z
     Route: 048
     Dates: start: 2017
  2. ACETAMINOPHEN [Suspect]
     Active Substance: ACETAMINOPHEN
     Indication: Pain
     Dosage: 3 GRAM, QD (1X/DAY (IF PAIN OR FEVER))
     Route: 048
     Dates: start: 2017, end: 2017
  3. AMIKACIN [Suspect]
     Active Substance: AMIKACIN
     Indication: Pain
     Dosage: 80 MILLIGRAM, QD (20 MG, 4X/DAY)
     Route: 065
     Dates: start: 2017
  4. AMIKACIN [Suspect]
     Active Substance: AMIKACIN
     Dosage: UNK UNSPECIFIED
     Route: 042
     Dates: end: 20170610
  5. AMIKACIN [Suspect]
     Active Substance: AMIKACIN
     Dosage: UNK
     Route: 042
     Dates: start: 20170403, end: 20170408
  6. AMIKACIN [Suspect]
     Active Substance: AMIKACIN
     Dosage: UNK
     Route: 042
     Dates: start: 20170421, end: 20170424
  7. AMIKACIN [Suspect]
     Active Substance: AMIKACIN
     Dosage: UNK
     Route: 042
     Dates: start: 20170607, end: 20170610
  8. AMIKACIN [Suspect]
     Active Substance: AMIKACIN
     Dosage: UNK
     Route: 042
     Dates: start: 20170526, end: 20170529
  9. AMIKACIN [Suspect]
     Active Substance: AMIKACIN
     Dosage: UNK
     Route: 042
     Dates: end: 20170610
  10. POTASSIUM BICARBONATE\SODIUM ALGINATE [Suspect]
     Active Substance: POTASSIUM BICARBONATE\SODIUM ALGINATE
     Indication: Gastrooesophageal reflux disease
     Dosage: UNK UNK, TID
     Route: 048
     Dates: start: 2017
  11. PHLOROGLUCINOL\1,3,5-TRIMETHOXYBENZENE [Suspect]
     Active Substance: PHLOROGLUCINOL\1,3,5-TRIMETHOXYBENZENE
     Indication: Pain
     Dosage: 2 DOSAGE FORM 2 DF, Z
     Route: 048
     Dates: start: 2017
  12. PHLOROGLUCINOL\1,3,5-TRIMETHOXYBENZENE [Suspect]
     Active Substance: PHLOROGLUCINOL\1,3,5-TRIMETHOXYBENZENE
     Indication: Abdominal pain
     Dosage: 2 DF QD NEEDED (TWO TABLETS THREE TIMES DAILY
     Route: 048
     Dates: start: 2017, end: 2017
  13. CELLCEPT [Suspect]
     Active Substance: MYCOPHENOLATE MOFETIL
     Indication: Prophylaxis against transplant rejection
     Dosage: 2000 MG, QD ( BID, 1000 MG, 2X/DAY)
     Route: 048
     Dates: start: 2017
  14. CELLCEPT [Suspect]
     Active Substance: MYCOPHENOLATE MOFETIL
     Dosage: 2000 MG, QD 1000 MG, BID
     Route: 048
     Dates: start: 2017
  15. CANCIDAS [Suspect]
     Active Substance: CASPOFUNGIN ACETATE
     Indication: Fungal infection
     Dosage: 70 MILLIGRAM, QD (70 MG, 1D)
     Route: 042
     Dates: start: 201703
  16. KEPPRA [Suspect]
     Active Substance: LEVETIRACETAM
     Indication: Epilepsy
     Dosage: 1000 MILLIGRAM, QD (500 MG, BID)
     Route: 048
     Dates: start: 20170422
  17. ZERBAXA [Suspect]
     Active Substance: CEFTOLOZANE SULFATE\TAZOBACTAM SODIUM
     Indication: Cellulitis
     Dosage: 9 GRAM, QD (3 G, TID)
     Route: 042
     Dates: start: 20170331
  18. GAVISCON [Suspect]
     Active Substance: ALUMINUM HYDROXIDE\MAGNESIUM CARBONATE
     Indication: Gastrooesophageal reflux disease
     Dosage: 3 DOSAGE FORM, QD (3 DF, DAILY)
     Route: 048
     Dates: start: 2017, end: 2017
  19. GAVISCON [Suspect]
     Active Substance: ALUMINUM HYDROXIDE\MAGNESIUM CARBONATE
     Dosage: 1 DOSAGE FORM Z
     Route: 048
     Dates: start: 2017
  20. GAVISCON [Suspect]
     Active Substance: ALUMINUM HYDROXIDE\MAGNESIUM CARBONATE
     Dosage: 9 DOSAGE FORM, QD (3X/DAY (IF NEEDED)  )
     Route: 048
     Dates: start: 2017, end: 2017
  21. GAVISCON [Suspect]
     Active Substance: ALUMINUM HYDROXIDE\MAGNESIUM CARBONATE
     Dosage: 3 DOSAGE FORM, QD (3 DF 1X/DAY IF NECESSARY)
     Route: 048
     Dates: start: 2017, end: 2017
  22. CILASTATIN SODIUM\IMIPENEM [Suspect]
     Active Substance: CILASTATIN SODIUM\IMIPENEM
     Indication: Product used for unknown indication
     Dosage: 1500 MILLIGRAM, QD (500 MG, TID)
     Route: 042
     Dates: start: 201703, end: 20170403
  23. URSODIOL [Suspect]
     Active Substance: URSODIOL
     Indication: Product used for unknown indication
     Dosage: 200 MILLIGRAM
     Route: 048
     Dates: start: 20170331
  24. MAGNESIUM ALGINATE\SODIUM ALGINATE [Suspect]
     Active Substance: MAGNESIUM ALGINATE\SODIUM ALGINATE
     Indication: Gastrooesophageal reflux disease
     Dosage: 1 DOSAGE FORM, Q8H (1 DF, EVERY 8 HOURS)
     Route: 048
     Dates: start: 2017
  25. GANCICLOVIR [Suspect]
     Active Substance: GANCICLOVIR
     Indication: Prophylaxis
     Dosage: UNK
     Route: 042
     Dates: start: 20170330, end: 20170504
  26. BACTRIM [Suspect]
     Active Substance: SULFAMETHOXAZOLE\TRIMETHOPRIM
     Indication: Pneumocystis jirovecii pneumonia
     Dosage: 800 MILLIGRAM, QD (800 MG, 1D)
     Route: 048
     Dates: start: 201703, end: 20170526
  27. HYDROCORTISONE [Suspect]
     Active Substance: HYDROCORTISONE
     Indication: Product used for unknown indication
     Dosage: UNK
     Route: 065
  28. NEORAL [Suspect]
     Active Substance: CYCLOSPORINE
     Indication: Prophylaxis against transplant rejection
     Dosage: 80 MILLIGRAM, QD (40 MG, BID)
     Route: 048
     Dates: start: 2017
  29. EUPANTOL [Suspect]
     Active Substance: PANTOPRAZOLE SODIUM
     Indication: Gastrooesophageal reflux disease
     Dosage: 40 MILLIGRAM, QD (40 MG, 1D)
     Route: 042
     Dates: start: 2017
  30. LINEZOLID [Suspect]
     Active Substance: LINEZOLID
     Indication: Product used for unknown indication
     Dosage: 1200 MILLIGRAM, QD (600 MG, BID)
     Route: 042
     Dates: start: 201703, end: 20170430
  31. RACECADOTRIL [Suspect]
     Active Substance: RACECADOTRIL
     Indication: Diarrhoea
     Dosage: 600 MILLIGRAM, QD (200 MG, TID)
     Route: 048
     Dates: start: 2017
  32. ACUPAN [Suspect]
     Active Substance: NEFOPAM HYDROCHLORIDE
     Indication: Pain
     Dosage: 20 MG, Z
     Route: 042
     Dates: start: 2017
  33. DITROPAN [Suspect]
     Active Substance: OXYBUTYNIN CHLORIDE
     Indication: Product used for unknown indication
     Dosage: 15 MILLIGRAM, QD (5 MG, TID)
     Route: 048
     Dates: start: 2017
  34. SOLU-MEDROL [Suspect]
     Active Substance: METHYLPREDNISOLONE SODIUM SUCCINATE
     Indication: Product used for unknown indication
     Dosage: 160 MILLIGRAM, QD (160 MG, 1D)
     Route: 042
     Dates: start: 2017
  35. URAPIDIL [Suspect]
     Active Substance: URAPIDIL
     Indication: Hypertension
     Dosage: 48 MILLIGRAM, QD (2 MG, 24D)
     Route: 042
     Dates: start: 201703, end: 20170330
  36. VALACYCLOVIR HYDROCHLORIDE [Suspect]
     Active Substance: VALACYCLOVIR HYDROCHLORIDE
     Indication: Prophylaxis
     Dosage: UNK
     Route: 048
     Dates: start: 20170504
  37. URAPIDIL [Concomitant]
     Active Substance: URAPIDIL
     Indication: Product used for unknown indication
     Dosage: 48 MG, QD, 48 MG, DAILY (2 MG PER HOUR)
     Route: 065
     Dates: start: 201703, end: 20170330
  38. BISOPROLOL [Concomitant]
     Active Substance: BISOPROLOL
     Indication: Prophylaxis
     Dosage: UNK
     Route: 048
     Dates: start: 20170531
  39. TARGOCID [Concomitant]
     Active Substance: TEICOPLANIN
     Indication: Product used for unknown indication
     Dosage: UNK
     Route: 065
     Dates: start: 20170524, end: 20170529
  40. VANCOMYCIN [Concomitant]
     Active Substance: VANCOMYCIN
     Indication: Product used for unknown indication
     Dosage: UNK
     Route: 065
     Dates: start: 20170529
  41. RAMIPRIL [Concomitant]
     Active Substance: RAMIPRIL
     Indication: Prophylaxis against transplant rejection
     Dosage: 2000 MG, QD
     Route: 048
     Dates: start: 20170531
  42. HYDROCORTISONE [Concomitant]
     Active Substance: HYDROCORTISONE
     Indication: Product used for unknown indication
     Dosage: UNK
     Route: 065
  43. CELLCEPT [Concomitant]
     Active Substance: MYCOPHENOLATE MOFETIL
     Indication: Prophylaxis against transplant rejection
     Dosage: 2000 MILLIGRAM, QD (2000 MG, 1X/DAY)
     Route: 048
     Dates: start: 2017
  44. ATOVAQUONE [Concomitant]
     Active Substance: ATOVAQUONE
     Indication: Product used for unknown indication
     Dosage: UNK
     Route: 065
     Dates: start: 20170526
  45. AMLODIPINE BESYLATE [Concomitant]
     Active Substance: AMLODIPINE BESYLATE
     Indication: Epilepsy
     Dosage: 1000 MG, QD
     Route: 048
     Dates: start: 20170526, end: 20170531

REACTIONS (4)
  - Confusional state [Recovering/Resolving]
  - Amnesia [Recovering/Resolving]
  - Pancytopenia [Recovered/Resolved]
  - Drug interaction [Unknown]

NARRATIVE: CASE EVENT DATE: 20170329
